FAERS Safety Report 18648497 (Version 4)
Quarter: 2022Q1

REPORT INFORMATION
  Report Type: Spontaneous
  Country: US (occurrence: US)
  Receive Date: 20201222
  Receipt Date: 20220215
  Transmission Date: 20220424
  Serious: Yes (Other)
  Sender: FDA-Public Use
  Company Number: US-PFIZER INC-2020505568

PATIENT
  Age: 67 Year
  Sex: Female

DRUGS (2)
  1. IBRANCE [Suspect]
     Active Substance: PALBOCICLIB
     Dosage: 125 MG, CYCLIC (DAILY FOR 21 DAYS ON 7 DAYS OFF)
     Route: 048
     Dates: start: 20211104
  2. IBRANCE [Suspect]
     Active Substance: PALBOCICLIB
     Dosage: 100 MG, CYCLIC, (DAILY FOR 21 DAYS ON 7 DAYS OFF)
     Route: 048

REACTIONS (6)
  - Thrombosis [Unknown]
  - Pulmonary embolism [Recovered/Resolved]
  - Dyspnoea [Not Recovered/Not Resolved]
  - Decreased immune responsiveness [Unknown]
  - Joint swelling [Not Recovered/Not Resolved]
  - White blood cell count decreased [Not Recovered/Not Resolved]
